FAERS Safety Report 23536214 (Version 2)
Quarter: 2024Q1

REPORT INFORMATION
  Report Type: Spontaneous
  Country: BE (occurrence: BE)
  Receive Date: 20240219
  Receipt Date: 20240308
  Transmission Date: 20240409
  Serious: Yes (Hospitalization, Other)
  Sender: FDA-Public Use
  Company Number: None

PATIENT
  Age: 60 Year
  Sex: Female
  Weight: 90 kg

DRUGS (1)
  1. RYBELSUS [Suspect]
     Active Substance: SEMAGLUTIDE
     Indication: Overweight
     Dosage: 1 DF, QD
     Route: 048
     Dates: start: 20230616, end: 20231215

REACTIONS (5)
  - Biliary colic [Recovered/Resolved]
  - Hepatitis cholestatic [Recovered/Resolved]
  - Cholecystectomy [Recovered/Resolved]
  - Cholelithiasis [Recovered/Resolved]
  - Product prescribing issue [Recovered/Resolved]

NARRATIVE: CASE EVENT DATE: 20231229
